FAERS Safety Report 13251960 (Version 3)
Quarter: 2018Q1

REPORT INFORMATION
  Report Type: Spontaneous
  Country: US (occurrence: US)
  Receive Date: 20170220
  Receipt Date: 20180309
  Transmission Date: 20180508
  Serious: No
  Sender: FDA-Public Use
  Company Number: US-LUNDBECK-DKLU2022485

PATIENT
  Age: 62 Year
  Sex: Female

DRUGS (11)
  1. AMITRIPTYALINE [Concomitant]
     Route: 065
  2. LINZESS [Concomitant]
     Active Substance: LINACLOTIDE
     Route: 065
  3. CARVEDILOL. [Concomitant]
     Active Substance: CARVEDILOL
     Route: 065
  4. BETHANECHOL [Concomitant]
     Active Substance: BETHANECHOL
     Route: 065
  5. RAMIPRIL. [Concomitant]
     Active Substance: RAMIPRIL
     Route: 065
  6. ROSUVASTATIN. [Concomitant]
     Active Substance: ROSUVASTATIN
     Route: 065
  7. METFORMIN [Concomitant]
     Active Substance: METFORMIN HYDROCHLORIDE
     Route: 065
  8. NORTHERA [Suspect]
     Active Substance: DROXIDOPA
     Dosage: SCHEDULE C
     Route: 048
     Dates: start: 20161217
  9. MIDODRINE [Concomitant]
     Active Substance: MIDODRINE
     Route: 065
  10. NORTHERA [Suspect]
     Active Substance: DROXIDOPA
     Indication: PRODUCT USED FOR UNKNOWN INDICATION
     Route: 048
     Dates: start: 20160116
  11. NORTHERA [Suspect]
     Active Substance: DROXIDOPA
     Dosage: TITRATION COMPLETE
     Route: 048
     Dates: start: 2017

REACTIONS (15)
  - Incorrect dose administered [Unknown]
  - Bladder discomfort [Unknown]
  - Neurological examination abnormal [Unknown]
  - Condition aggravated [Unknown]
  - Dizziness [Unknown]
  - Hypotension [Unknown]
  - Gastrointestinal disorder [Unknown]
  - Dysstasia [Unknown]
  - Sleep apnoea syndrome [Unknown]
  - Gait disturbance [Unknown]
  - Chest discomfort [Unknown]
  - Drug dose omission [Unknown]
  - Asthenia [Unknown]
  - Fatigue [Unknown]
  - Dyspnoea [Unknown]

NARRATIVE: CASE EVENT DATE: 20180212
